FAERS Safety Report 20103666 (Version 1)
Quarter: 2021Q4

REPORT INFORMATION
  Report Type: Spontaneous
  Country: CN (occurrence: CN)
  Receive Date: 20211123
  Receipt Date: 20211123
  Transmission Date: 20220303
  Serious: No
  Sender: FDA-Public Use
  Company Number: CN-BoehringerIngelheim-2021-BI-139920

PATIENT
  Age: 62 Year
  Sex: Male
  Weight: 60.000 kg

DRUGS (3)
  1. LINAGLIPTIN [Suspect]
     Active Substance: LINAGLIPTIN
     Indication: Blood glucose decreased
     Route: 048
     Dates: start: 20210930, end: 20211119
  2. PIOGLITAZONE AND METFORMIN [Suspect]
     Active Substance: METFORMIN HYDROCHLORIDE\PIOGLITAZONE HYDROCHLORIDE
     Indication: Blood glucose decreased
     Dosage: 1.000 DOSAGE FORM
     Route: 048
     Dates: start: 20210930, end: 20211119
  3. JARDIANCE [Suspect]
     Active Substance: EMPAGLIFLOZIN
     Indication: Blood glucose decreased
     Route: 048
     Dates: start: 20210929, end: 20210930

REACTIONS (2)
  - Urine ketone body present [Recovering/Resolving]
  - Product use issue [Unknown]

NARRATIVE: CASE EVENT DATE: 20211010
